FAERS Safety Report 18160110 (Version 1)
Quarter: 2020Q3

REPORT INFORMATION
  Report Type: Spontaneous
  Country: SE (occurrence: SE)
  Receive Date: 20200818
  Receipt Date: 20200818
  Transmission Date: 20201103
  Serious: Yes (Death, Hospitalization, Other)
  Sender: FDA-Public Use
  Company Number: SE-ACTELION-A-CH2020-207935

PATIENT

DRUGS (1)
  1. BOSENTAN. [Suspect]
     Active Substance: BOSENTAN
     Indication: PULMONARY HYPERTENSION
     Route: 048

REACTIONS (12)
  - Death [Fatal]
  - Hypotension [Unknown]
  - Fontan procedure [Unknown]
  - Disease progression [Unknown]
  - Pulmonary artery banding [Unknown]
  - Transaminases increased [Unknown]
  - Heart transplant [Unknown]
  - Heart valve incompetence [Unknown]
  - Cardiac operation [Unknown]
  - Surgical vascular shunt [Unknown]
  - Rash [Unknown]
  - Renal failure [Unknown]
